FAERS Safety Report 9729758 (Version 3)
Quarter: 2015Q3

REPORT INFORMATION
  Report Type: Spontaneous
  Country: US (occurrence: US)
  Receive Date: 20131204
  Receipt Date: 20150804
  Transmission Date: 20151125
  Serious: No
  Sender: FDA-Public Use
  Company Number: US-GILEAD-2009-0021975

PATIENT
  Age: 70 Year
  Sex: Male
  Weight: 63.05 kg

DRUGS (12)
  1. DOCUSATE-PLUS [Concomitant]
  2. COUMADIN [Concomitant]
     Active Substance: WARFARIN SODIUM
  3. DILTIA XT [Concomitant]
     Active Substance: DILTIAZEM HYDROCHLORIDE
  4. CENTRUM [Concomitant]
     Active Substance: VITAMINS
  5. MIRTAZAPINE. [Concomitant]
     Active Substance: MIRTAZAPINE
  6. BL VITAMIN B12 [Concomitant]
  7. OMEPRAZOLE. [Concomitant]
     Active Substance: OMEPRAZOLE
  8. LETAIRIS [Suspect]
     Active Substance: AMBRISENTAN
     Indication: PULMONARY ARTERIAL HYPERTENSION
     Route: 048
     Dates: start: 20090421
  9. CELLCEPT [Concomitant]
     Active Substance: MYCOPHENOLATE MOFETIL\MYCOPHENOLATE MOFETIL HYDROCHLORIDE
  10. PREDNISONE. [Concomitant]
     Active Substance: PREDNISONE
  11. SIMVASTATIN. [Concomitant]
     Active Substance: SIMVASTATIN
  12. METFORMIN HCL [Concomitant]
     Active Substance: METFORMIN HYDROCHLORIDE

REACTIONS (2)
  - Headache [Unknown]
  - Abdominal pain upper [Unknown]
